FAERS Safety Report 10305190 (Version 1)
Quarter: 2014Q3

REPORT INFORMATION
  Report Type: Spontaneous
  Country: DE (occurrence: DE)
  Receive Date: 20140715
  Receipt Date: 20140715
  Transmission Date: 20150326
  Serious: Yes (Congenital Anomaly)
  Sender: FDA-Public Use
  Company Number: PHHY2014DE084558

PATIENT
  Age: 1 Day
  Sex: Female

DRUGS (3)
  1. OMEPRAZOL//OMEPRAZOLE [Concomitant]
     Dosage: UNK (MATERNAL DOSE: 40 MG DAILY)
     Route: 064
  2. LEPONEX [Suspect]
     Active Substance: CLOZAPINE
     Dosage: UNK (MATERNAL DOSE: 200 MG, DAILY (50 MG, 50 MG, 100 MG))
     Route: 064
  3. FOLIO FORTE [Concomitant]
     Active Substance: FOLIC ACID\VITAMINS
     Indication: PROPHYLAXIS OF NEURAL TUBE DEFECT
     Dosage: UNK (MATERNAL DOSE: 0.8 MG, DAILY)
     Route: 064

REACTIONS (2)
  - Aorta hypoplasia [Not Recovered/Not Resolved]
  - Bicuspid aortic valve [Not Recovered/Not Resolved]

NARRATIVE: CASE EVENT DATE: 20130514
